FAERS Safety Report 10547615 (Version 1)
Quarter: 2014Q4

REPORT INFORMATION
  Report Type: Spontaneous
  Country: US (occurrence: US)
  Receive Date: 20141028
  Receipt Date: 20141028
  Transmission Date: 20150529
  Serious: Yes (Hospitalization)
  Sender: FDA-Public Use
  Company Number: US-BEH-2014045758

PATIENT
  Age: 19 Year
  Sex: Female

DRUGS (1)
  1. BERINERT [Suspect]
     Active Substance: HUMAN C1-ESTERASE INHIBITOR
     Indication: HEREDITARY ANGIOEDEMA
     Route: 042
     Dates: start: 20140819

REACTIONS (2)
  - Swelling face [Recovered/Resolved]
  - Local swelling [Recovered/Resolved]

NARRATIVE: CASE EVENT DATE: 20141013
